FAERS Safety Report 8502723-1 (Version None)
Quarter: 2012Q3

REPORT INFORMATION
  Report Type: 
  Country: None (occurrence: None)
  Receive Date: 20120711
  Receipt Date: 20120702
  Transmission Date: 20120928
  Serious: Yes (Other)
  Sender: FDA-Public Use
  Company Number: US-JNJFOC-20120518249

PATIENT
  Sex: Female

DRUGS (10)
  1. TOPAMAX [Suspect]
     Indication: MIGRAINE
     Route: 048
     Dates: start: 20051201, end: 20051230
  2. ZOLOFT [Suspect]
     Indication: DEPRESSION
     Route: 048
  3. CAFFEINE [Suspect]
     Indication: MIGRAINE
     Route: 065
  4. AMOXICILLIN [Suspect]
     Indication: INFECTION
     Route: 065
  5. ERRIN [Suspect]
     Indication: CONTRACEPTION
     Route: 048
  6. IMITREX [Suspect]
     Indication: MIGRAINE
     Route: 048
  7. CEPHALEXIN [Suspect]
     Indication: INFECTION
     Route: 065
  8. EPIDURAL ANESTHESIA [Suspect]
     Indication: ANAESTHESIA
     Route: 065
  9. UNKNOWN MEDICATION [Suspect]
     Indication: MIGRAINE
     Route: 065
  10. MULTI-VITAMINS [Concomitant]
     Route: 048

REACTIONS (2)
  - MATERNAL EXPOSURE DURING PREGNANCY [None]
  - EMOTIONAL DISORDER [None]
